FAERS Safety Report 5512765-6 (Version None)
Quarter: 2007Q4

REPORT INFORMATION
  Report Type: 
  Country: None (occurrence: None)
  Receive Date: 20071108
  Receipt Date: 20071026
  Transmission Date: 20080405
  Serious: Yes (Other)
  Sender: FDA-Public Use
  Company Number: 238622K07USA

PATIENT
  Age: 26 Year
  Sex: Male
  Weight: 127.4608 kg

DRUGS (2)
  1. REBIF [Suspect]
     Indication: MULTIPLE SCLEROSIS
     Dosage: 44 MCG, 3 IN 1 WEEKS, SUBCUTANEOUS
     Route: 058
     Dates: start: 20070810, end: 20071001
  2. PROZAC [Suspect]
     Dosage: 20 MG, 1 IN 1 DAYS, ORAL
     Route: 048
     Dates: start: 20070401

REACTIONS (6)
  - DIZZINESS [None]
  - FALL [None]
  - HEART RATE DECREASED [None]
  - HEPATIC ENZYME INCREASED [None]
  - INJECTION SITE ERYTHEMA [None]
  - LOSS OF CONSCIOUSNESS [None]
